FAERS Safety Report 24007223 (Version 1)
Quarter: 2024Q2

REPORT INFORMATION
  Report Type: Spontaneous
  Country: GB (occurrence: GB)
  Receive Date: 20240624
  Receipt Date: 20240624
  Transmission Date: 20240716
  Serious: Yes (Other)
  Sender: FDA-Public Use
  Company Number: GB-MHRA-EMIS-1429-c322a531-bdb7-468b-8e99-f7a11966ea88

PATIENT
  Age: 57 Year
  Sex: Male
  Weight: 127 kg

DRUGS (7)
  1. MOUNJARO [Suspect]
     Active Substance: TIRZEPATIDE
     Indication: Product used for unknown indication
     Dosage: 2.5 MG, WEEKLY (1/W)
     Route: 058
     Dates: start: 20240604
  2. TRAMADOL [Concomitant]
     Active Substance: TRAMADOL\TRAMADOL HYDROCHLORIDE
     Indication: Product used for unknown indication
     Dosage: 1-2 DAILY IF REQUIRED
     Dates: start: 20240417
  3. SEMAGLUTIDE [Concomitant]
     Active Substance: SEMAGLUTIDE
     Indication: Product used for unknown indication
     Dosage: 3 MG, DAILY
     Dates: start: 20240425, end: 20240604
  4. RAMIPRIL [Concomitant]
     Active Substance: RAMIPRIL
     Indication: Product used for unknown indication
     Dates: start: 20240508
  5. PREDNISOLONE [Concomitant]
     Active Substance: PREDNISOLONE
     Indication: Product used for unknown indication
     Dates: start: 20240612
  6. FLUOCINOLONE ACETONIDE [Concomitant]
     Active Substance: FLUOCINOLONE ACETONIDE
     Indication: Product used for unknown indication
     Dosage: 100 G
     Dates: start: 20240612
  7. LANOLIN\LIGHT MINERAL OIL\PARAFFIN [Concomitant]
     Active Substance: LANOLIN\LIGHT MINERAL OIL\PARAFFIN
     Indication: Product used for unknown indication
     Dosage: 400 ML
     Dates: start: 20240612

REACTIONS (2)
  - Swelling face [Unknown]
  - Urticaria [Recovering/Resolving]

NARRATIVE: CASE EVENT DATE: 20240611
